FAERS Safety Report 6891565-9 (Version None)
Quarter: 2010Q3

REPORT INFORMATION
  Report Type: 
  Country: None (occurrence: None)
  Receive Date: 20100731
  Receipt Date: 20070830
  Transmission Date: 20110219
  Serious: No
  Sender: FDA-Public Use
  Company Number: US-PFIZER INC-2007070337

PATIENT
  Sex: Female

DRUGS (3)
  1. NORVASC [Suspect]
  2. QUINAPRIL [Concomitant]
  3. METOPROLOL TARTRATE [Concomitant]

REACTIONS (2)
  - INCORRECT DOSE ADMINISTERED [None]
  - OEDEMA [None]
